FAERS Safety Report 23872456 (Version 2)
Quarter: 2024Q2

REPORT INFORMATION
  Report Type: Spontaneous
  Country: BR (occurrence: BR)
  Receive Date: 20240520
  Receipt Date: 20240521
  Transmission Date: 20240715
  Serious: Yes (Other)
  Sender: FDA-Public Use
  Company Number: BR-JNJFOC-20240536549

PATIENT
  Sex: Female

DRUGS (1)
  1. SPORANOX [Suspect]
     Active Substance: ITRACONAZOLE
     Indication: Product used for unknown indication
     Route: 065

REACTIONS (4)
  - Infarction [Unknown]
  - Pulmonary mass [Unknown]
  - Toxoplasmosis [Unknown]
  - Off label use [Unknown]
